FAERS Safety Report 5148650-1 (Version None)
Quarter: 2006Q4

REPORT INFORMATION
  Report Type: 
  Country: None (occurrence: None)
  Receive Date: 20061107
  Receipt Date: 20061023
  Transmission Date: 20070319
  Serious: Yes (Death)
  Sender: FDA-Public Use
  Company Number: 2006002039

PATIENT
  Sex: Female

DRUGS (2)
  1. TARCEVA [Suspect]
     Indication: PANCREATIC CARCINOMA
     Dosage: SEE IMAGE
     Route: 048
     Dates: start: 20060908, end: 20060919
  2. TARCEVA [Suspect]
     Indication: PANCREATIC CARCINOMA
     Dosage: SEE IMAGE
     Route: 048
     Dates: start: 20060920, end: 20061012

REACTIONS (2)
  - HAEMORRHAGE [None]
  - INCORRECT DOSE ADMINISTERED [None]
